FAERS Safety Report 8940991 (Version 6)
Quarter: 2014Q3

REPORT INFORMATION
  Report Type: Spontaneous
  Country: US (occurrence: US)
  Receive Date: 20121203
  Receipt Date: 20140826
  Transmission Date: 20150326
  Serious: No
  Sender: FDA-Public Use
  Company Number: US-009507513-1211USA010738

PATIENT
  Sex: Male
  Weight: 93.88 kg

DRUGS (3)
  1. PROPECIA [Suspect]
     Active Substance: FINASTERIDE
     Indication: ALOPECIA
     Dosage: 1 MG, QID
     Route: 048
     Dates: start: 19990604
  2. PROSCAR [Suspect]
     Active Substance: FINASTERIDE
     Indication: BENIGN PROSTATIC HYPERPLASIA
     Dosage: 5 MG, QD
     Route: 048
     Dates: start: 201201
  3. FINASTERIDE. [Suspect]
     Active Substance: FINASTERIDE
     Dosage: 5 MG, UNK
     Route: 048
     Dates: start: 20110919, end: 20120202

REACTIONS (11)
  - Mental impairment [Unknown]
  - Cognitive disorder [Unknown]
  - Prostatic specific antigen increased [Unknown]
  - Prostatic specific antigen increased [Unknown]
  - Prostatic specific antigen increased [Not Recovered/Not Resolved]
  - Nocturia [Unknown]
  - Hypertension [Unknown]
  - Blood urine present [Unknown]
  - Arthropod bite [Unknown]
  - Organic erectile dysfunction [Unknown]
  - Erectile dysfunction [Unknown]

NARRATIVE: CASE EVENT DATE: 199911
